FAERS Safety Report 9368817 (Version 2)
Quarter: 2013Q3

REPORT INFORMATION
  Report Type: Spontaneous
  Country: AU (occurrence: AU)
  Receive Date: 20130626
  Receipt Date: 20130716
  Transmission Date: 20140515
  Serious: Yes (Death)
  Sender: FDA-Public Use
  Company Number: AU-B.I. PHARMACEUTICALS,INC./RIDGEFIELD-2013-AU-00758AU

PATIENT
  Age: 93 Year
  Sex: Female
  Weight: 64 kg

DRUGS (4)
  1. PRADAXA [Suspect]
     Indication: CEREBROVASCULAR ACCIDENT PROPHYLAXIS
     Dates: start: 20111013, end: 20130211
  2. PRADAXA [Suspect]
     Indication: ATRIAL FIBRILLATION
  3. NEXIUM [Concomitant]
     Indication: DYSPEPSIA
  4. CODEINE BASED PRODUCT [Concomitant]
     Indication: DIARRHOEA

REACTIONS (2)
  - Arrhythmia [Fatal]
  - Circulatory collapse [Fatal]
